FAERS Safety Report 6504341-3 (Version None)
Quarter: 2009Q4

REPORT INFORMATION
  Report Type: 
  Country: None (occurrence: None)
  Receive Date: 20091215
  Receipt Date: 20091201
  Transmission Date: 20100525
  Serious: Yes (Hospitalization, Other)
  Sender: FDA-Public Use
  Company Number: MPS1-10526

PATIENT
  Age: 2 Year
  Sex: Male
  Weight: 18 kg

DRUGS (1)
  1. ALDURAZYME [Suspect]
     Indication: MUCOPOLYSACCHARIDOSIS I
     Dosage: 0.58MG/KG, QW, INTRAVEOUNS
     Route: 042
     Dates: start: 20050101, end: 20060801

REACTIONS (11)
  - CARDIAC VALVE DISEASE [None]
  - DEAFNESS [None]
  - DISEASE PROGRESSION [None]
  - DRUG INEFFECTIVE [None]
  - GENERAL PHYSICAL HEALTH DETERIORATION [None]
  - HYDROCEPHALUS [None]
  - INCORRECT DOSE ADMINISTERED [None]
  - KYPHOSCOLIOSIS [None]
  - MITRAL VALVE DISEASE [None]
  - MUCOPOLYSACCHARIDOSIS I [None]
  - STEM CELL TRANSPLANT [None]
